FAERS Safety Report 7601688-4 (Version None)
Quarter: 2011Q2

REPORT INFORMATION
  Report Type: 
  Country: None (occurrence: None)
  Receive Date: 20110629
  Receipt Date: 20100830
  Transmission Date: 20111010
  Serious: Yes (Hospitalization)
  Sender: FDA-Public Use
  Company Number: 724735

PATIENT
  Age: 48 Year
  Sex: Female

DRUGS (8)
  1. FELODIPINE [Concomitant]
  2. LABETALOL (LABETALOL HYDROCHLORIDE) [Concomitant]
  3. ALUMINIUM HYDROXIDE (ALUMINIUM HYDROXIDE) [Concomitant]
  4. FOLIC ACID [Concomitant]
  5. CLONAZEPAM [Suspect]
     Indication: MYOCLONUS
     Dosage: 0.25 MG , 2 PER 1 DAY, ORAL
     Route: 048
  6. ERYTHROPOIETIN (EPOETIN NOS) [Concomitant]
  7. CALCIUM CARBONATE (CALCIUIM CARBONATE) [Concomitant]
  8. VITAMIN B COMPLEX (VITAMIN B COMPLEX) [Concomitant]

REACTIONS (1)
  - PANCYTOPENIA [None]
